FAERS Safety Report 5912145-5 (Version None)
Quarter: 2008Q4

REPORT INFORMATION
  Report Type: 
  Country: None (occurrence: None)
  Receive Date: 20081008
  Receipt Date: 20081006
  Transmission Date: 20090506
  Serious: Yes (Other)
  Sender: FDA-Public Use
  Company Number: US-RB-004858-08

PATIENT
  Sex: Male

DRUGS (2)
  1. SUBOXONE [Suspect]
     Route: 060
     Dates: start: 20081006
  2. ACTIQ [Concomitant]
     Indication: PAIN
     Dosage: DOSE FORM - LOLLIPOP
     Route: 002

REACTIONS (3)
  - DIARRHOEA [None]
  - HALLUCINATION [None]
  - VOMITING [None]
